FAERS Safety Report 12612218 (Version 2)
Quarter: 2016Q4

REPORT INFORMATION
  Report Type: Spontaneous
  Country: BR (occurrence: BR)
  Receive Date: 20160801
  Receipt Date: 20161025
  Transmission Date: 20170207
  Serious: Yes (Life-Threatening, Other)
  Sender: FDA-Public Use
  Company Number: PHHY2016BR102763

PATIENT
  Sex: Female
  Weight: 110 kg

DRUGS (6)
  1. VALTRIAN HCT [Concomitant]
     Indication: DYSURIA
  2. PANTOPRAZOL [Suspect]
     Active Substance: PANTOPRAZOLE SODIUM
     Indication: GASTROOESOPHAGEAL REFLUX DISEASE
     Dosage: 40 MG, BID
     Route: 048
     Dates: start: 20160724
  3. SYNTHROID [Concomitant]
     Active Substance: LEVOTHYROXINE SODIUM
     Indication: THYROID DISORDER
     Dosage: 1 DF, UNK
     Route: 048
  4. SELOZOK [Concomitant]
     Active Substance: METOPROLOL SUCCINATE
     Indication: CARDIAC DISORDER
     Dosage: 1 DF, UNK
     Route: 048
     Dates: start: 2014
  5. RITMONORM [Concomitant]
     Active Substance: PROPAFENONE HYDROCHLORIDE
     Indication: CARDIAC DISORDER
     Dosage: 150 MG, ADMINISTERED ? TABLET PER DAY
     Route: 048
  6. VALTRIAN HCT [Concomitant]
     Indication: CARDIAC DISORDER
     Dosage: 1 DF, UNK
     Route: 048
     Dates: start: 2014

REACTIONS (11)
  - Vomiting [Unknown]
  - Dizziness [Unknown]
  - Abdominal pain [Unknown]
  - Skin plaque [Unknown]
  - Headache [Unknown]
  - Abdominal distension [Unknown]
  - Apparent death [Unknown]
  - Feeling abnormal [Unknown]
  - Dysuria [Unknown]
  - Malaise [Unknown]
  - Sciatica [Not Recovered/Not Resolved]
